FAERS Safety Report 21489728 (Version 2)
Quarter: 2022Q4

REPORT INFORMATION
  Report Type: Spontaneous
  Country: US (occurrence: US)
  Receive Date: 20221021
  Receipt Date: 20221114
  Transmission Date: 20230112
  Serious: No
  Sender: FDA-Public Use
  Company Number: US-PHARMAESSENTIA CORPORATION-US-2022-PEC-000794

PATIENT

DRUGS (3)
  1. BESREMI [Suspect]
     Active Substance: ROPEGINTERFERON ALFA-2B-NJFT
     Indication: Polycythaemia vera
     Dosage: 100 MCG, Q2W
     Route: 058
     Dates: start: 20220825
  2. BESREMI [Suspect]
     Active Substance: ROPEGINTERFERON ALFA-2B-NJFT
     Dosage: 100 MICROGRAM
     Route: 058
  3. POTASSIUM [Concomitant]
     Active Substance: POTASSIUM
     Indication: Product used for unknown indication
     Dosage: 20 DAILY

REACTIONS (8)
  - Red blood cell count increased [Unknown]
  - Platelet count increased [Unknown]
  - Haemoglobin abnormal [Unknown]
  - Pain [Recovered/Resolved]
  - White blood cell count abnormal [Unknown]
  - Pruritus [Unknown]
  - Chills [Recovered/Resolved]
  - Arthralgia [Unknown]
